FAERS Safety Report 6710124-1 (Version None)
Quarter: 2010Q2

REPORT INFORMATION
  Report Type: 
  Country: None (occurrence: None)
  Receive Date: 20100504
  Receipt Date: 20100427
  Transmission Date: 20101027
  Serious: Yes (Hospitalization)
  Sender: FDA-Public Use
  Company Number: JP-ROCHE-634393

PATIENT
  Sex: Female
  Weight: 22 kg

DRUGS (24)
  1. TOCILIZUMAB [Suspect]
     Indication: JUVENILE ARTHRITIS
     Route: 041
     Dates: start: 20080522, end: 20090416
  2. TOCILIZUMAB [Suspect]
     Route: 041
     Dates: start: 20090514
  3. PREDNISOLONE [Concomitant]
     Dosage: ORAL FORMULATION NOS
     Route: 048
     Dates: start: 20080220, end: 20080318
  4. PREDNISOLONE [Concomitant]
     Dosage: ORAL FORMULATION NOS
     Route: 048
     Dates: start: 20080319, end: 20080410
  5. PREDNISOLONE [Concomitant]
     Route: 048
     Dates: start: 20080411, end: 20080508
  6. PREDNISOLONE [Concomitant]
     Dosage: ORAL FORMULATION NOS
     Route: 048
     Dates: start: 20080509, end: 20080605
  7. PREDNISOLONE [Concomitant]
     Dosage: ORAL FORMULATION NOS
     Route: 048
     Dates: start: 20080606
  8. PREDNISOLONE [Concomitant]
     Dosage: ORAL FORMULATION NOS
     Route: 048
     Dates: start: 20081120
  9. PREDNISOLONE [Concomitant]
     Dosage: ORAL FORMULATION NOS
     Route: 048
     Dates: start: 20090402, end: 20090415
  10. PREDNISOLONE [Concomitant]
     Dosage: ORAL FORMULATION NOS
     Route: 048
     Dates: start: 20090416, end: 20090513
  11. PREDNISOLONE [Concomitant]
     Dosage: ORAL FORMULATION NOS
     Route: 048
     Dates: start: 20090514, end: 20090517
  12. PREDNISOLONE [Concomitant]
     Dosage: ORAL FORMULATION NOS
     Route: 048
     Dates: start: 20090518, end: 20090524
  13. PREDNISOLONE [Concomitant]
     Route: 048
     Dates: start: 20090525, end: 20090603
  14. PREDNISOLONE [Concomitant]
     Dosage: ORAL FORMULATION NOS
     Route: 048
     Dates: start: 20090604, end: 20090617
  15. PREDNISOLONE [Concomitant]
     Dosage: ORAL FORMULATION NOS
     Route: 048
     Dates: start: 20090618, end: 20090701
  16. PREDNISOLONE [Concomitant]
     Dosage: ORAL FORMULATION NOS
     Route: 048
     Dates: start: 20090702, end: 20090715
  17. PREDNISOLONE [Concomitant]
     Dosage: ORAL FORMULATION NOS
     Route: 048
     Dates: start: 20090716, end: 20090729
  18. PREDNISOLONE [Concomitant]
     Dosage: ORAL FORMULATION NOS
     Route: 048
     Dates: start: 20090730
  19. DEXAMETHASONE PALMITATE [Concomitant]
     Dosage: ROUTE: INTRAVENOUS NOS; DRUG: LIMETHASON
     Route: 042
     Dates: start: 20081120, end: 20081120
  20. ULCERLMIN [Concomitant]
     Dosage: FORM: FINE GRANULE
     Route: 048
  21. MAGNESIUM OXIDE [Concomitant]
     Dosage: DRUG: BONALON 35MG(ALENDRONATE SODIUM HYDRATE)
     Route: 048
  22. FOSAMAX [Concomitant]
     Dosage: DRUG: FOSAMAC
     Route: 048
  23. METHOTREXATE [Concomitant]
     Route: 048
     Dates: start: 20090305
  24. BONALON [Concomitant]
     Route: 048

REACTIONS (4)
  - HISTIOCYTOSIS HAEMATOPHAGIC [None]
  - JUVENILE ARTHRITIS [None]
  - LIVER DISORDER [None]
  - UPPER RESPIRATORY TRACT INFLAMMATION [None]
